FAERS Safety Report 5197571-7 (Version None)
Quarter: 2007Q1

REPORT INFORMATION
  Report Type: 
  Country: None (occurrence: None)
  Receive Date: 20070103
  Receipt Date: 20061220
  Transmission Date: 20070707
  Serious: Yes (Other)
  Sender: FDA-Public Use
  Company Number: DE-GILEAD-2006-0009308

PATIENT
  Sex: Female
  Weight: 45 kg

DRUGS (4)
  1. TRUVADA [Suspect]
     Indication: HIV INFECTION
     Dates: start: 20051025
  2. TELZIR [Concomitant]
     Indication: HIV INFECTION
     Dates: start: 20051025
  3. NORVIR [Concomitant]
     Indication: HIV INFECTION
     Dates: start: 20051025
  4. PREDNISOLONE [Concomitant]
     Dates: start: 20051109, end: 20060123

REACTIONS (5)
  - CAESAREAN SECTION [None]
  - CONGENITAL HYDRONEPHROSIS [None]
  - DRUG EXPOSURE DURING PREGNANCY [None]
  - PREGNANCY [None]
  - ULTRASOUND ANTENATAL SCREEN ABNORMAL [None]
